FAERS Safety Report 9624089 (Version 1)
Quarter: 2013Q4

REPORT INFORMATION
  Report Type: Spontaneous
  Country: US (occurrence: US)
  Receive Date: 20131015
  Receipt Date: 20131015
  Transmission Date: 20140711
  Serious: No
  Sender: FDA-Public Use
  Company Number: US-UPSHER-SMITH LABORATORIES, INC.-12003495

PATIENT
  Age: 65 Year
  Sex: Male

DRUGS (7)
  1. KLOR-CON M [Suspect]
     Indication: BLOOD POTASSIUM DECREASED
     Dosage: 20 MEQ, QD
     Route: 048
     Dates: start: 2004, end: 201212
  2. HYDROCHLOROTHIAZIDE WITH TRIAMTERENE [Concomitant]
     Indication: HYPERTENSION
     Dosage: UNK, QD
     Route: 048
     Dates: start: 2004, end: 201212
  3. TYLENOL                            /00020001/ [Concomitant]
     Dosage: UNK
     Dates: end: 201212
  4. VITAMIN B12                        /00056201/ [Concomitant]
     Dosage: UNK
     Dates: end: 201212
  5. ATENOLOL TEVA [Suspect]
     Indication: HYPERTENSION
     Dosage: 25 MG, UNK
     Route: 048
  6. ADVIL /00109201/ [Suspect]
     Indication: PAIN IN EXTREMITY
     Dosage: UNK
  7. LORATADINE [Suspect]
     Indication: EYE PRURITUS

REACTIONS (2)
  - Rash pruritic [Recovering/Resolving]
  - Pain [Recovering/Resolving]
